FAERS Safety Report 5772889-5 (Version None)
Quarter: 2008Q2

REPORT INFORMATION
  Report Type: 
  Country: None (occurrence: None)
  Receive Date: 20080613
  Receipt Date: 20080604
  Transmission Date: 20081010
  Serious: Yes (Other)
  Sender: FDA-Public Use
  Company Number: ZA-PFIZER INC-2008046788

PATIENT
  Sex: Male
  Weight: 84 kg

DRUGS (4)
  1. LIPITOR [Suspect]
     Indication: HYPERCHOLESTEROLAEMIA
     Route: 048
  2. LIPITOR [Suspect]
  3. LIPITOR [Suspect]
  4. EZETROL [Concomitant]
     Route: 048
     Dates: start: 20060815, end: 20070112

REACTIONS (2)
  - EPICONDYLITIS [None]
  - NEURITIS [None]
